FAERS Safety Report 8769313 (Version 1)
Quarter: 2012Q4

REPORT INFORMATION
  Report Type: 
  Country: US (occurrence: US)
  Receive Date: 20120905
  Receipt Date: 20120905
  Transmission Date: 20130627
  Serious: No
  Sender: FDA-Public Use
  Company Number: US-PFIZER INC-2012215247

PATIENT
  Age: 38 Year
  Sex: Male
  Weight: 86.17 kg

DRUGS (4)
  1. LYRICA [Suspect]
     Indication: HYPOAESTHESIA
     Dosage: 100 mg, 3x/day
     Route: 048
  2. LYRICA [Suspect]
     Indication: PARAESTHESIA
     Dosage: 200 mg, UNK
     Route: 048
     Dates: start: 2008, end: 2008
  3. LYRICA [Suspect]
     Indication: NEURALGIA
     Dosage: 100 mg, 3x/day
     Route: 048
     Dates: start: 2008
  4. LYRICA [Suspect]
     Indication: FEELING OF BODY TEMPERATURE CHANGE

REACTIONS (2)
  - Incorrect dose administered [Unknown]
  - Drug ineffective [Recovered/Resolved]
